FAERS Safety Report 9799384 (Version 1)
Quarter: 2014Q1

REPORT INFORMATION
  Report Type: Spontaneous
  Country: US (occurrence: None)
  Receive Date: 20140103
  Receipt Date: 20140103
  Transmission Date: 20141002
  Serious: Yes (Death, Hospitalization)
  Sender: FDA-Public Use
  Company Number: None

PATIENT
  Age: 68 Year
  Sex: Female
  Weight: 102 kg

DRUGS (1)
  1. 5-FLUOROURACIL (5-FU) [Suspect]
     Dosage: RECEIEVED CONTINOUS INFRUSION OF 5FU AS PART OF CONCURRENT CHEMORADIATION.

REACTIONS (10)
  - Enterocolitis [None]
  - Small intestinal obstruction [None]
  - Aphagia [None]
  - Abdominal pain [None]
  - Deep vein thrombosis [None]
  - Cardiac disorder [None]
  - Staphylococcal sepsis [None]
  - Device related infection [None]
  - Pulmonary oedema [None]
  - Respiratory failure [None]
